FAERS Safety Report 20382965 (Version 1)
Quarter: 2022Q1

REPORT INFORMATION
  Report Type: Spontaneous
  Country: US (occurrence: None)
  Receive Date: 20220127
  Receipt Date: 20220127
  Transmission Date: 20220424
  Serious: No
  Sender: FDA-Public Use
  Company Number: None

PATIENT
  Age: 79 Year
  Sex: Male

DRUGS (2)
  1. XGEVA [Suspect]
     Active Substance: DENOSUMAB
     Indication: Plasma cell myeloma
     Dates: start: 201703
  2. XGEVA [Suspect]
     Active Substance: DENOSUMAB
     Indication: Prostate cancer

REACTIONS (1)
  - Hospitalisation [None]
